FAERS Safety Report 8988166 (Version 1)
Quarter: 2012Q4

REPORT INFORMATION
  Report Type: Report from Study
  Country: ES (occurrence: ES)
  Receive Date: 20121227
  Receipt Date: 20121227
  Transmission Date: 20130627
  Serious: Yes (Other)
  Sender: FDA-Public Use
  Company Number: ES-ROCHE-1173628

PATIENT
  Age: 60 Year
  Sex: Female
  Weight: 81 kg

DRUGS (8)
  1. TOCILIZUMAB [Suspect]
     Indication: RHEUMATOID ARTHRITIS
     Route: 042
     Dates: start: 20100517, end: 20100621
  2. TOCILIZUMAB [Suspect]
     Route: 065
     Dates: start: 20110125
  3. TOCILIZUMAB [Suspect]
     Route: 065
     Dates: start: 20110404
  4. LEFLUNOMIDE [Concomitant]
     Indication: RHEUMATOID ARTHRITIS
     Route: 048
     Dates: start: 20100621
  5. DEFLAZACORT [Concomitant]
     Indication: RHEUMATOID ARTHRITIS
     Route: 048
     Dates: start: 20000317
  6. ACECLOFENAC [Concomitant]
     Indication: RHEUMATOID ARTHRITIS
     Dosage: 12 hourly if required
     Route: 048
     Dates: start: 20050812
  7. METAMIZOL [Concomitant]
     Dosage: as required
     Route: 048
     Dates: start: 20100621
  8. OMEPRAZOL [Concomitant]
     Route: 065
     Dates: start: 20100317

REACTIONS (2)
  - Pruritus [Recovered/Resolved]
  - Erythema [Recovered/Resolved]
